FAERS Safety Report 7065036-3 (Version None)
Quarter: 2010Q4

REPORT INFORMATION
  Report Type: 
  Country: None (occurrence: None)
  Receive Date: 20101027
  Receipt Date: 19940203
  Transmission Date: 20110411
  Serious: Yes (Death, Hospitalization)
  Sender: FDA-Public Use
  Company Number: US-ROCHE-940200253001

PATIENT
  Sex: Female
  Weight: 63 kg

DRUGS (7)
  1. ACCUTANE [Suspect]
     Route: 048
     Dates: start: 19931209, end: 19940203
  2. IBUPROFEN [Suspect]
     Route: 065
     Dates: end: 19940201
  3. ROFERON-A [Concomitant]
     Route: 065
     Dates: start: 19931209, end: 19940202
  4. EPOGEN [Concomitant]
     Route: 065
  5. DILANTIN [Concomitant]
     Route: 065
  6. MORPHINE [Concomitant]
     Route: 065
  7. BENADRYL [Concomitant]
     Route: 065

REACTIONS (10)
  - AMMONIA INCREASED [None]
  - BLOOD AMYLASE INCREASED [None]
  - BLOOD CHLORIDE INCREASED [None]
  - BLOOD GLUCOSE INCREASED [None]
  - BLOOD OSMOLARITY INCREASED [None]
  - BLOOD POTASSIUM INCREASED [None]
  - LIPASE INCREASED [None]
  - METABOLIC ACIDOSIS [None]
  - METASTATIC NEOPLASM [None]
  - PYREXIA [None]
